FAERS Safety Report 24793774 (Version 1)
Quarter: 2024Q4

REPORT INFORMATION
  Report Type: Spontaneous
  Country: FR (occurrence: FR)
  Receive Date: 20241231
  Receipt Date: 20241231
  Transmission Date: 20250115
  Serious: Yes (Other)
  Sender: ALKEM
  Company Number: None

PATIENT
  Age: 59 Year
  Sex: Female
  Weight: 63 kg

DRUGS (11)
  1. TACROLIMUS [Interacting]
     Active Substance: TACROLIMUS
     Indication: Immunosuppressant drug therapy
     Dosage: 0.47 MILLIGRAM/KILOGRAM, QD (15 MILLIGRAM) TWICE DAILY (IMMEDIATE RELEASE)
     Route: 065
  2. TACROLIMUS [Interacting]
     Active Substance: TACROLIMUS
     Dosage: 0.31 MILLIGRAM/KILOGRAM, QD (10 MILLIGRAM TWICE DAILY) (IMMEDIATE RELEASE)
     Route: 065
  3. TACROLIMUS [Interacting]
     Active Substance: TACROLIMUS
     Dosage: 0.28 MILLIGRAM/KILOGRAM, QD (9 MILLIGRAM TWICE DAILY) (IMMEDIATE RELEASE)
     Route: 065
  4. TACROLIMUS [Interacting]
     Active Substance: TACROLIMUS
     Dosage: 0.24 MILLIGRAM/KILOGRAM, QD (7.5 MILLIGRAM) TWICE DAILY (IMMEDIATE RELEASE)
     Route: 065
  5. TACROLIMUS [Interacting]
     Active Substance: TACROLIMUS
     Dosage: 0.22 MILLIGRAM/KILOGRAM, QD (7 MILLIGRAM TWICE DAILY) (IMMEDIATE RELEASE)
     Route: 065
  6. TACROLIMUS [Interacting]
     Active Substance: TACROLIMUS
     Dosage: 0.22 MILLIGRAM/KILOGRAM, QD (7 MILLIGRAM TWICE DAILY) (IMMEDIATE RELEASE)
     Route: 065
  7. TACROLIMUS [Interacting]
     Active Substance: TACROLIMUS
     Dosage: 0.20 MILLIGRAM/KILOGRAM, QD (6 MILLIGRAM) (TWICE DAILY) (IMMEDIATE RELEASE)
     Route: 065
  8. TACROLIMUS [Interacting]
     Active Substance: TACROLIMUS
     Dosage: 0.16 MILLIGRAM/KILOGRAM, QD (5 MILLIGRAM) (TWICE DAILY) (DOSE DECREASED) (IMMEDIATE RELEASE)
     Route: 065
  9. TACROLIMUS [Interacting]
     Active Substance: TACROLIMUS
     Dosage: 0.2 MILLIGRAM/KILOGRAM, QD (6.5 MILLIGRAM TWICE DAILY) (IMMEDIATE RELEASE)
     Route: 065
  10. MYCOPHENOLATE MOFETIL [Concomitant]
     Active Substance: MYCOPHENOLATE MOFETIL
     Indication: Immunosuppressant drug therapy
     Dosage: UNK
     Route: 065
  11. PHENOBARBITAL [Interacting]
     Active Substance: PHENOBARBITAL
     Indication: Product used for unknown indication
     Dosage: UNK
     Route: 065

REACTIONS (3)
  - Nephropathy toxic [Recovered/Resolved]
  - Blood creatinine increased [Recovered/Resolved]
  - Drug interaction [Unknown]
